FAERS Safety Report 18336448 (Version 2)
Quarter: 2020Q4

REPORT INFORMATION
  Report Type: Spontaneous
  Country: ES (occurrence: ES)
  Receive Date: 20201001
  Receipt Date: 20201021
  Transmission Date: 20210113
  Serious: Yes (Hospitalization, Other)
  Sender: FDA-Public Use
  Company Number: ES-ASTRAZENECA-2020SF23552

PATIENT
  Age: 66 Year
  Sex: Female

DRUGS (2)
  1. EDISTRIDE [Suspect]
     Active Substance: DAPAGLIFLOZIN
     Indication: DIABETES MELLITUS
     Route: 048
  2. VELMETIA [Concomitant]
     Active Substance: METFORMIN\SITAGLIPTIN
     Indication: DIABETES MELLITUS

REACTIONS (3)
  - Skin ulcer [Unknown]
  - Toe amputation [Unknown]
  - Varicose vein [Unknown]

NARRATIVE: CASE EVENT DATE: 20200818
